FAERS Safety Report 8401940-9 (Version None)
Quarter: 2012Q2

REPORT INFORMATION
  Report Type: 
  Country: None (occurrence: None)
  Receive Date: 20120601
  Receipt Date: 20120524
  Transmission Date: 20120825
  Serious: Yes (Other)
  Sender: FDA-Public Use
  Company Number: SE-PFIZER INC-2012129784

PATIENT
  Sex: Male

DRUGS (4)
  1. CODEINE [Suspect]
  2. MORPHINE SULFATE [Suspect]
     Dosage: UNK
  3. BUPRENORPHINE [Suspect]
     Dosage: UNK
  4. TRAMADOL HYDROCHLORIDE [Suspect]
     Dosage: UNK

REACTIONS (1)
  - TOXICITY TO VARIOUS AGENTS [None]
